FAERS Safety Report 8853322 (Version 1)
Quarter: 2012Q4

REPORT INFORMATION
  Report Type: 
  Country: AU (occurrence: AU)
  Receive Date: 20121022
  Receipt Date: 20121022
  Transmission Date: 20130627
  Serious: Yes (Life-Threatening, Hospitalization)
  Sender: FDA-Public Use
  Company Number: AU-ROXANE LABORATORIES, INC.-2012-RO-02027RO

PATIENT
  Age: 69 Year
  Sex: Female

DRUGS (10)
  1. AZATHIOPRINE [Suspect]
     Indication: MICROSCOPIC POLYANGIITIS
     Dosage: 75 mg
  2. CYCLOPHOSPHAMIDE TABLETS USP [Suspect]
     Indication: MICROSCOPIC POLYANGIITIS
  3. PERINDOPRIL ERBUMINE [Suspect]
  4. CALCIUM CARBONATE [Suspect]
  5. PREDNISOLONE [Suspect]
     Indication: MICROSCOPIC POLYANGIITIS
  6. PANTOPRAZOLE [Suspect]
  7. RISEDRONATE [Suspect]
  8. ERYTHROPOIETIN [Suspect]
  9. VITAMIN D [Suspect]
  10. WARFARIN [Suspect]
     Indication: DEEP VEIN THROMBOSIS

REACTIONS (4)
  - Multi-organ failure [Unknown]
  - Drug hypersensitivity [Unknown]
  - Cardiogenic shock [Recovered/Resolved]
  - Acute febrile neutrophilic dermatosis [Recovered/Resolved]
